FAERS Safety Report 9892001 (Version 2)
Quarter: 2014Q2

REPORT INFORMATION
  Report Type: Spontaneous
  Country: US (occurrence: US)
  Receive Date: 20140212
  Receipt Date: 20140408
  Transmission Date: 20141212
  Serious: No
  Sender: FDA-Public Use
  Company Number: US-009507513-1402USA005073

PATIENT
  Age: 42 Year
  Sex: Male
  Weight: 65.76 kg

DRUGS (1)
  1. CLARITIN [Suspect]
     Indication: PRODUCT USED FOR UNKNOWN INDICATION
     Dosage: UNK, QD
     Route: 048
     Dates: start: 20140112, end: 20140118

REACTIONS (2)
  - Rash [Recovered/Resolved]
  - Eye pain [Recovered/Resolved]
